FAERS Safety Report 5064683-8 (Version None)
Quarter: 2006Q3

REPORT INFORMATION
  Report Type: 
  Country: None (occurrence: None)
  Receive Date: 20060728
  Receipt Date: 20060726
  Transmission Date: 20061208
  Serious: Yes (Other)
  Sender: FDA-Public Use
  Company Number: US-GLAXOSMITHKLINE-A0613758A

PATIENT
  Age: 30 Year
  Sex: Female

DRUGS (3)
  1. WELLBUTRIN [Suspect]
     Dosage: 300MG PER DAY
     Route: 048
  2. LAMICTAL [Concomitant]
     Dosage: 50MG PER DAY
     Route: 048
     Dates: start: 20060725
  3. PRENATAL VITAMINS [Concomitant]

REACTIONS (2)
  - DRUG EXPOSURE DURING PREGNANCY [None]
  - MULTIPLE SCLEROSIS [None]
